FAERS Safety Report 26066216 (Version 1)
Quarter: 2025Q4

REPORT INFORMATION
  Report Type: Spontaneous
  Country: US (occurrence: None)
  Receive Date: 20251119
  Receipt Date: 20251119
  Transmission Date: 20260117
  Serious: Yes (unspecified)
  Sender: FDA-CTU
  Company Number: None

PATIENT
  Age: 84 Year
  Sex: Female

DRUGS (1)
  1. LEQEMBI IQLIK [Suspect]
     Active Substance: LECANEMAB-IRMB
     Dates: start: 20250701

REACTIONS (2)
  - Infusion related reaction [None]
  - Brain oedema [None]

NARRATIVE: CASE EVENT DATE: 20251119
